FAERS Safety Report 4905224-2 (Version None)
Quarter: 2006Q1

REPORT INFORMATION
  Report Type: 
  Country: None (occurrence: None)
  Receive Date: 20060208
  Receipt Date: 20051130
  Transmission Date: 20060701
  Serious: No
  Sender: FDA-Public Use
  Company Number: US-GLAXOSMITHKLINE-A0584115A

PATIENT
  Age: 65 Year
  Sex: Female

DRUGS (3)
  1. PAXIL [Suspect]
     Indication: WAGNER'S DISEASE
     Dosage: 40MG PER DAY
     Route: 048
     Dates: start: 20051123
  2. ESTRACE [Concomitant]
  3. SYNTHROID [Concomitant]

REACTIONS (1)
  - DRUG INEFFECTIVE [None]
